FAERS Safety Report 14016023 (Version 2)
Quarter: 2017Q4

REPORT INFORMATION
  Report Type: Spontaneous
  Country: BR (occurrence: BR)
  Receive Date: 20170927
  Receipt Date: 20171006
  Transmission Date: 20180321
  Serious: Yes (Hospitalization, Other)
  Sender: FDA-Public Use
  Company Number: BR-PFIZER INC-2017394220

PATIENT
  Age: 67 Year
  Sex: Male

DRUGS (7)
  1. SIMVASTATIN. [Concomitant]
     Active Substance: SIMVASTATIN
     Indication: BLOOD CHOLESTEROL ABNORMAL
     Dosage: UNK
     Dates: start: 2011
  2. INSULIN [Concomitant]
     Active Substance: INSULIN NOS
     Indication: DIABETES MELLITUS
     Dosage: UNK
     Dates: start: 2009
  3. CAVERJECT [Suspect]
     Active Substance: ALPROSTADIL
     Indication: ERECTILE DYSFUNCTION
     Dosage: 20 UG, EVERY 15 OR 20 DAYS (ONE OR TWO TIMES PER MONTH)
  4. CAVERJECT [Suspect]
     Active Substance: ALPROSTADIL
     Dosage: 10 UG, EVERY 15 OR 20 DAYS / ONE OR TWO TIMES PER MONTH
  5. CAVERJECT [Suspect]
     Active Substance: ALPROSTADIL
     Dosage: ONE THIRD ONE A FOURTH OF AMPOULE OF 10MG, ONCE EVERY 15 TO 20 DAYS/ ONE OR TWO TIMES PER MONTH
  6. ENALAPRIL [Concomitant]
     Active Substance: ENALAPRIL
     Indication: BLOOD PRESSURE INCREASED
     Dosage: 10 MG, UNK
  7. AAS [Concomitant]
     Active Substance: ASPIRIN
     Indication: BLOOD DISORDER
     Dosage: UNK

REACTIONS (3)
  - Penile pain [Recovered/Resolved]
  - Atrial flutter [Recovered/Resolved]
  - Venous occlusion [Recovered/Resolved]

NARRATIVE: CASE EVENT DATE: 201606
